FAERS Safety Report 6702115-1 (Version None)
Quarter: 2010Q2

REPORT INFORMATION
  Report Type: 
  Country: None (occurrence: None)
  Receive Date: 20100429
  Receipt Date: 20100420
  Transmission Date: 20101027
  Serious: Yes (Other)
  Sender: FDA-Public Use
  Company Number: US-JNJCH-2010008437

PATIENT
  Age: 60 Year
  Sex: Female
  Weight: 68 kg

DRUGS (4)
  1. LUBRIDERM INTENSE SKIN REPAIR BODY LOTION [Suspect]
     Indication: DRY SKIN
     Dosage: TEXT:^A COUPLE PUMPS^
     Route: 061
  2. LISINOPRIL [Concomitant]
     Indication: HYPERTENSION
     Dosage: TEXT:10MG  1X DAILY
     Route: 065
  3. LIPITOR [Concomitant]
     Indication: BLOOD CHOLESTEROL
     Dosage: TEXT:20MG  1X DAILY
     Route: 065
  4. SYNTHROID [Concomitant]
     Indication: THYROID DISORDER
     Dosage: TEXT:.05MG 1X DAILY
     Route: 065

REACTIONS (1)
  - RASH [None]
